FAERS Safety Report 19304358 (Version 3)
Quarter: 2022Q1

REPORT INFORMATION
  Report Type: Spontaneous
  Country: US (occurrence: US)
  Receive Date: 20210526
  Receipt Date: 20220223
  Transmission Date: 20220423
  Serious: Yes (Other)
  Sender: FDA-Public Use
  Company Number: US-CELGENE-USA-20210505802

PATIENT
  Sex: Female

DRUGS (5)
  1. ZEPOSIA [Suspect]
     Active Substance: OZANIMOD HYDROCHLORIDE
     Indication: Relapsing-remitting multiple sclerosis
     Dosage: .92 MILLIGRAM
     Route: 048
     Dates: start: 20200701
  2. SYNTHROID [Concomitant]
     Active Substance: LEVOTHYROXINE SODIUM
     Indication: Product used for unknown indication
     Route: 065
  3. ZOLOFT [Concomitant]
     Active Substance: SERTRALINE HYDROCHLORIDE
     Indication: Product used for unknown indication
     Route: 065
  4. STRATTERA [Concomitant]
     Active Substance: ATOMOXETINE HYDROCHLORIDE
     Indication: Product used for unknown indication
     Route: 065
  5. Covid vaccines- Moderna [Concomitant]
     Indication: Prophylaxis
     Route: 065

REACTIONS (16)
  - Bipolar disorder [Unknown]
  - Tremor [Unknown]
  - Extremity contracture [Unknown]
  - Paraesthesia [Unknown]
  - Dizziness [Unknown]
  - Irritability [Unknown]
  - Amnesia [Unknown]
  - Distractibility [Unknown]
  - Fatigue [Unknown]
  - Hypoaesthesia [Unknown]
  - Pain [Unknown]
  - Balance disorder [Unknown]
  - Feeling abnormal [Unknown]
  - Temperature intolerance [Unknown]
  - Anxiety [Unknown]
  - Disturbance in attention [Unknown]
